FAERS Safety Report 6433782-8 (Version None)
Quarter: 2009Q4

REPORT INFORMATION
  Report Type: 
  Country: None (occurrence: None)
  Receive Date: 20091110
  Receipt Date: 20090727
  Transmission Date: 20100525
  Serious: No
  Sender: FDA-Public Use
  Company Number: A0798827A

PATIENT
  Age: 19 Year
  Sex: Male

DRUGS (2)
  1. ALTABAX [Suspect]
     Indication: RASH
     Route: 061
     Dates: start: 20090717
  2. IBUPROFEN [Concomitant]

REACTIONS (1)
  - PAIN [None]
